FAERS Safety Report 6446217-6 (Version None)
Quarter: 2009Q4

REPORT INFORMATION
  Report Type: 
  Country: None (occurrence: None)
  Receive Date: 20091119
  Receipt Date: 20091112
  Transmission Date: 20100525
  Serious: Yes (Life-Threatening, Hospitalization, Other)
  Sender: FDA-Public Use
  Company Number: CH-ROXANE LABORATORIES, INC.-2009-RO-01165RO

PATIENT
  Age: 55 Year
  Sex: Female

DRUGS (18)
  1. LITHIUM CARBONATE [Suspect]
     Dosage: 625 MG
  2. LITHIUM CARBONATE [Suspect]
     Dosage: 900 MG
  3. LORAZEPAM [Suspect]
     Dosage: 4 MG
  4. LORAZEPAM [Suspect]
     Dosage: 3 MG
  5. LORAZEPAM [Suspect]
     Dosage: 2 MG
  6. RISPERIDONE [Suspect]
     Dosage: 1 MG
  7. SERTRALINE HCL [Suspect]
     Indication: ANTIDEPRESSANT THERAPY
     Dosage: 100 MG
  8. SERTRALINE HCL [Suspect]
     Dosage: 150 MG
  9. SERTRALINE HCL [Suspect]
     Dosage: 200 MG
  10. ARIPIPRAZOLE [Suspect]
     Indication: PSYCHOTIC DISORDER
     Dosage: 60 MG
  11. ARIPIPRAZOLE [Suspect]
     Dosage: 45 MG
  12. ARIPIPRAZOLE [Suspect]
     Dosage: 30 MG
  13. QUETIAPINE [Suspect]
     Dosage: 200 MG
  14. MAGNESIUM [Suspect]
     Dosage: 7.5 MG
  15. LEVOTHYROXINE SODIUM [Suspect]
     Dosage: 0.05 MG
  16. OLANZAPINE [Suspect]
     Indication: PSYCHOTIC DISORDER
     Dosage: 10 MG
  17. PRAVASTATIN [Suspect]
  18. BETAMETHASONE [Suspect]
     Indication: RASH

REACTIONS (6)
  - DEPRESSION [None]
  - EOSINOPHILIA [None]
  - FATIGUE [None]
  - HALLUCINATION, AUDITORY [None]
  - RASH ERYTHEMATOUS [None]
  - SUICIDE ATTEMPT [None]
